FAERS Safety Report 17862839 (Version 1)
Quarter: 2020Q2

REPORT INFORMATION
  Report Type: Spontaneous
  Country: US (occurrence: US)
  Receive Date: 20200605
  Receipt Date: 20200605
  Transmission Date: 20200714
  Serious: No
  Sender: FDA-Public Use
  Company Number: US-DRREDDYS-USA/USA/20/0123556

PATIENT
  Age: 20 Year

DRUGS (2)
  1. ZENATANE [Suspect]
     Active Substance: ISOTRETINOIN
     Indication: PRODUCT USED FOR UNKNOWN INDICATION
     Dosage: 4-MAR-2020 RMA ISSUE DATE
     Route: 048
  2. ZENATANE [Suspect]
     Active Substance: ISOTRETINOIN
     Dosage: 31-MAR-2020, 28-APR-2020 RMA ISSUE DATE
     Route: 048

REACTIONS (1)
  - Adverse drug reaction [Recovering/Resolving]
